FAERS Safety Report 13766619 (Version 2)
Quarter: 2017Q3

REPORT INFORMATION
  Report Type: Spontaneous
  Country: US (occurrence: US)
  Receive Date: 20170719
  Receipt Date: 20170719
  Transmission Date: 20171127
  Serious: Yes (Other)
  Sender: FDA-Public Use
  Company Number: US-PFIZER INC-2016452888

PATIENT
  Age: 35 Year
  Sex: Female
  Weight: 68.4 kg

DRUGS (25)
  1. LYRICA [Suspect]
     Active Substance: PREGABALIN
     Indication: BONE PAIN
  2. ATIVAN [Concomitant]
     Active Substance: LORAZEPAM
     Indication: NAUSEA
     Dosage: 2 MG, 1-2 TABS AS NEEDED
     Route: 048
  3. POTASSIUM CHLORIDE/SODIUM CHLORIDE [Concomitant]
  4. VITAMIN E [Concomitant]
     Active Substance: .ALPHA.-TOCOPHEROL
  5. CYMBALTA [Concomitant]
     Active Substance: DULOXETINE HYDROCHLORIDE
     Dosage: 60 MG, UNK
     Route: 048
  6. LYRICA [Suspect]
     Active Substance: PREGABALIN
     Indication: ARTHRITIS
     Dosage: 150 MG, 1X/DAY;(ONCE IN THE MORNING)
     Route: 048
     Dates: start: 2016, end: 201704
  7. SAVELLA [Concomitant]
     Active Substance: MILNACIPRAN HYDROCHLORIDE
     Dosage: 50 MG, 2X/DAY
     Route: 048
  8. SAVELLA [Concomitant]
     Active Substance: MILNACIPRAN HYDROCHLORIDE
     Dosage: 25 MG, 2X/DAY
     Route: 048
  9. MORPHINE SULFATE. [Concomitant]
     Active Substance: MORPHINE SULFATE
  10. LYRICA [Suspect]
     Active Substance: PREGABALIN
     Indication: ARTHRALGIA
  11. SAVELLA [Concomitant]
     Active Substance: MILNACIPRAN HYDROCHLORIDE
     Dosage: 12.5 MG, 2X/DAY
     Route: 048
  12. HYDROMORPHONE [Concomitant]
     Active Substance: HYDROMORPHONE
  13. PROMETHAZINE [Concomitant]
     Active Substance: PROMETHAZINE\PROMETHAZINE HYDROCHLORIDE
     Dosage: 25 MG, UNK
     Route: 048
  14. ATIVAN [Concomitant]
     Active Substance: LORAZEPAM
     Indication: ANXIETY
  15. HYDROCORTISONE/LIDOCAINE [Concomitant]
     Dosage: UNK UNK, AS NEEDED [HYDROCORTISONE 0.5%]/[LIDOCAINE 3%] (AFFECTED RECTAL AREA TWICE DAILY AS NEEDED)
     Route: 054
  16. CO-Q10 [Concomitant]
     Dosage: 200 MG, UNK
     Route: 048
  17. MELATONIN [Concomitant]
     Active Substance: MELATONIN
  18. FUROSEMIDE. [Concomitant]
     Active Substance: FUROSEMIDE
     Dosage: 20 MG, DAILY
     Route: 048
  19. B100 [Concomitant]
     Active Substance: MINERALS\VITAMINS
  20. LYRICA [Suspect]
     Active Substance: PREGABALIN
     Indication: OSTEOPOROSIS
     Dosage: 75 MG, 1X/DAY
     Route: 048
     Dates: start: 2015
  21. CHOLECALCIFEROL 1000 [Concomitant]
     Dosage: 1000 IU, DAILY
     Route: 048
  22. EPA FISH OIL [Concomitant]
     Dosage: 1000 MG, 2X/DAY
     Route: 048
  23. NAPROXEN. [Concomitant]
     Active Substance: NAPROXEN
     Dosage: 500 MG, 2X/DAY
     Route: 048
  24. PROBIOTIC [Concomitant]
     Active Substance: PROBIOTICS NOS
     Route: 048
  25. CALCIUM CITRATE [Concomitant]
     Active Substance: CALCIUM CITRATE

REACTIONS (4)
  - Arthritis [Not Recovered/Not Resolved]
  - Condition aggravated [Not Recovered/Not Resolved]
  - Product use in unapproved indication [Unknown]
  - Rheumatoid arthritis [Not Recovered/Not Resolved]

NARRATIVE: CASE EVENT DATE: 2015
